FAERS Safety Report 8410656-4 (Version None)
Quarter: 2012Q2

REPORT INFORMATION
  Report Type: 
  Country: None (occurrence: None)
  Receive Date: 20120529
  Receipt Date: 20060110
  Transmission Date: 20120825
  Serious: Yes (Hospitalization)
  Sender: FDA-Public Use
  Company Number: 15691-USA-06-0102

PATIENT
  Age: 56 Year
  Sex: Male

DRUGS (14)
  1. ALLOPURINOL [Concomitant]
  2. FUROSEMIDE [Concomitant]
  3. OMEPRAZOLE [Concomitant]
  4. TOLVAPTAN (TOLVAPTAN(V4.1)) 30MG [Suspect]
     Indication: CARDIAC FAILURE CONGESTIVE
     Dosage: 30 MG, QD, ORAL
     Route: 048
     Dates: start: 20050422, end: 20060105
  5. DIGOXIN [Concomitant]
  6. AMIODARONE HCL [Concomitant]
  7. METOLAZONE [Concomitant]
  8. LEVOTHYROXINE SODIUM [Concomitant]
  9. NAPHAZOLIN/PHENIRAMIN (NAPHAZOLINE) [Concomitant]
  10. BENAZEPRIL HYDROCHLORIDE [Concomitant]
  11. CARVEDILOL [Concomitant]
  12. CODEINE SULFATE [Concomitant]
  13. SPIRONOLACTONE [Concomitant]
  14. ENOXAPARIN SODIUM [Concomitant]

REACTIONS (14)
  - DEHYDRATION [None]
  - COUGH [None]
  - RENAL FAILURE ACUTE [None]
  - DYSPNOEA [None]
  - VOMITING [None]
  - HYPOPHAGIA [None]
  - PRESYNCOPE [None]
  - GOUT [None]
  - MUSCLE SPASMS [None]
  - CONDITION AGGRAVATED [None]
  - FLANK PAIN [None]
  - DIARRHOEA [None]
  - SYNCOPE [None]
  - MOBILITY DECREASED [None]
